FAERS Safety Report 8179467-1 (Version None)
Quarter: 2012Q1

REPORT INFORMATION
  Report Type: 
  Country: None (occurrence: None)
  Receive Date: 20120302
  Receipt Date: 20120221
  Transmission Date: 20120608
  Serious: Yes (Hospitalization, Other)
  Sender: FDA-Public Use
  Company Number: SE-JNJFOC-20120212091

PATIENT
  Sex: Female

DRUGS (3)
  1. CONCERTA [Suspect]
     Indication: BIPOLAR II DISORDER
     Route: 048
  2. LAMICTAL [Concomitant]
     Indication: PRODUCT USED FOR UNKNOWN INDICATION
     Route: 065
     Dates: start: 20100601
  3. CONCERTA [Suspect]
     Route: 048
     Dates: start: 20100601

REACTIONS (2)
  - HYPOMANIA [None]
  - BIPOLAR DISORDER [None]
